FAERS Safety Report 24377254 (Version 1)
Quarter: 2024Q3

REPORT INFORMATION
  Report Type: Report from Study
  Country: US (occurrence: US)
  Receive Date: 20240930
  Receipt Date: 20240930
  Transmission Date: 20241016
  Serious: Yes (Other)
  Sender: UCB
  Company Number: US-UCBSA-2024043495

PATIENT
  Sex: Male

DRUGS (2)
  1. FINTEPLA [Suspect]
     Active Substance: FENFLURAMINE
     Indication: Lennox-Gastaut syndrome
     Dosage: 5.1 MILLILITER, 2X/DAY (BID)
     Dates: start: 20240704
  2. FINTEPLA [Suspect]
     Active Substance: FENFLURAMINE
     Dosage: 5.1 MILLILITER, 2X/DAY (BID)
     Dates: start: 20240731, end: 20240919

REACTIONS (12)
  - Tremor [Recovered/Resolved]
  - Constipation [Not Recovered/Not Resolved]
  - Swelling [Not Recovered/Not Resolved]
  - Muscle twitching [Not Recovered/Not Resolved]
  - Head titubation [Not Recovered/Not Resolved]
  - Insomnia [Not Recovered/Not Resolved]
  - Diarrhoea [Not Recovered/Not Resolved]
  - Eye discharge [Not Recovered/Not Resolved]
  - Arthropathy [Not Recovered/Not Resolved]
  - Crying [Recovered/Resolved]
  - Peripheral swelling [Recovered/Resolved]
  - Somnolence [Recovered/Resolved]

NARRATIVE: CASE EVENT DATE: 20240101
